FAERS Safety Report 4686061-3 (Version None)
Quarter: 2005Q2

REPORT INFORMATION
  Report Type: 
  Country: None (occurrence: None)
  Receive Date: 20050609
  Receipt Date: 20011105
  Transmission Date: 20051028
  Serious: Yes (Death)
  Sender: FDA-Public Use
  Company Number: PHFR2001GB03039

PATIENT
  Age: 27 Year
  Sex: Male

DRUGS (5)
  1. CLOZARIL [Suspect]
     Indication: SCHIZOPHRENIA
     Dosage: 400MG/DAY
     Route: 048
     Dates: start: 20010905
  2. ZOLPIDEM [Concomitant]
     Indication: SLEEP DISORDER
     Dosage: 10MG/DAY
     Route: 048
     Dates: start: 19990101
  3. HYOSCINE HBR HYT [Concomitant]
     Dosage: NOCTE
     Route: 048
     Dates: start: 20011022
  4. SALBUTAMOL [Concomitant]
     Dosage: UNK, QID
  5. BECONASE [Concomitant]
     Dosage: UNK, QID

REACTIONS (1)
  - COMPLETED SUICIDE [None]
